FAERS Safety Report 4799754-4 (Version None)
Quarter: 2005Q4

REPORT INFORMATION
  Report Type: 
  Country: None (occurrence: None)
  Receive Date: 20051011
  Receipt Date: 20051011
  Transmission Date: 20060501
  Serious: Yes (Hospitalization)
  Sender: FDA-Public Use
  Company Number: None

PATIENT
  Sex: Male
  Weight: 99.7913 kg

DRUGS (7)
  1. CLOZARIL [Suspect]
     Indication: SCHIZOPHRENIA
     Dosage: 375MG  PO  QD  (THERAPY DATES: PRIOR TO ADMISSION)
     Route: 048
  2. COLACE [Concomitant]
  3. KLONOPIN [Concomitant]
  4. DEPAKOTE ER [Concomitant]
  5. M.V.I. [Concomitant]
  6. LACTULOSE [Concomitant]
  7. LORATADINE [Concomitant]

REACTIONS (3)
  - DYSPHAGIA [None]
  - PNEUMONIA ASPIRATION [None]
  - RHABDOMYOLYSIS [None]
